FAERS Safety Report 7626154 (Version 5)
Quarter: 2014Q1

REPORT INFORMATION
  Report Type: Spontaneous
  Country: US (occurrence: US)
  Receive Date: 20101013
  Receipt Date: 20140130
  Transmission Date: 20141002
  Serious: Yes (Hospitalization, Other)
  Sender: FDA-Public Use
  Company Number: US-BAYER-201036565NA

PATIENT
  Age: 22 Year
  Sex: Female
  Weight: 155 kg

DRUGS (4)
  1. YAZ [Suspect]
     Indication: PREMENSTRUAL SYNDROME
     Route: 048
     Dates: start: 200503, end: 200612
  2. NSAID^S [Concomitant]
     Dosage: UNK
  3. TYLENOL #3 [Concomitant]
     Indication: PAIN
     Dosage: UNK UNK, PRN (2 TABS AS NEEDED)
     Route: 048
  4. MOTRIN [Concomitant]
     Indication: PAIN
     Dosage: 600 MG, PRN (EVERY 6 HOURS AS NEEDED)
     Route: 048

REACTIONS (7)
  - Cholelithiasis [None]
  - Abdominal pain upper [None]
  - Pain [None]
  - Bile duct stone [None]
  - Cholecystitis chronic [None]
  - Mood swings [None]
  - Hypovolaemia [None]
